FAERS Safety Report 5634526-X (Version None)
Quarter: 2008Q1

REPORT INFORMATION
  Report Type: 
  Country: None (occurrence: None)
  Receive Date: 20080222
  Receipt Date: 20080213
  Transmission Date: 20080703
  Serious: Yes (Other)
  Sender: FDA-Public Use
  Company Number: DE-JNJFOC-20080106714

PATIENT
  Age: 81 Year
  Sex: Female
  Weight: 68 kg

DRUGS (8)
  1. REMICADE [Suspect]
     Dosage: SECOND INFUSION
     Route: 042
  2. REMICADE [Suspect]
     Indication: PSORIATIC ARTHROPATHY
     Dosage: INITIAL INFUSION, OVER 5 HOURS AND 30 MINUTES.
     Route: 042
  3. VALORON [Concomitant]
     Dosage: IN THE MORNING
  4. METHOTREXATE [Concomitant]
     Indication: PSORIATIC ARTHROPATHY
     Route: 065
  5. FOLIC ACID [Concomitant]
     Route: 065
  6. NIFEDIPINE [Concomitant]
     Dosage: IN THE MORNING
     Route: 065
  7. CALCIUM/VITAMIN D3 [Concomitant]
     Dosage: DOSE: ^1000^, PER DAY
     Route: 065
  8. ALENDRONATE SODIUM [Concomitant]
     Route: 065

REACTIONS (4)
  - HYPERTENSION [None]
  - INFUSION RELATED REACTION [None]
  - PALPITATIONS [None]
  - TACHYCARDIA [None]
